FAERS Safety Report 16981968 (Version 2)
Quarter: 2019Q4

REPORT INFORMATION
  Report Type: Spontaneous
  Country: DE (occurrence: DE)
  Receive Date: 20191101
  Receipt Date: 20191128
  Transmission Date: 20200122
  Serious: Yes (Life-Threatening, Hospitalization, Other)
  Sender: FDA-Public Use
  Company Number: DE-TEVA-2019-DE-1130301

PATIENT
  Age: 91 Year
  Sex: Male
  Weight: 75 kg

DRUGS (9)
  1. FEBUXOSTAT. [Suspect]
     Active Substance: FEBUXOSTAT
     Indication: HYPERURICAEMIA
     Dosage: 80MG / 2 DAYS, FOR  MORE THAN 2 YEARS
     Route: 048
  2. EZETIMIB 10 [Concomitant]
     Dosage: DAILY DOSE: 10 MG MILLGRAM(S) EVERY DAYS (1-0-0)
  3. TELMISARTAN 80 [Concomitant]
     Active Substance: TELMISARTAN
     Dosage: DAILY DOSE: 80 MG MILLGRAM(S) EVERY DAYS, 2 SEPARATED DOSES (1/2-0-1/2)
  4. ASS 100 [Concomitant]
     Active Substance: ASPIRIN
     Dosage: DAILY DOSE: 100 MG MILLGRAM(S) EVERY DAYS (1-0-0)
  5. IBUPROFEN. [Concomitant]
     Active Substance: IBUPROFEN
  6. ROSUVASTATIN. [Suspect]
     Active Substance: ROSUVASTATIN
     Indication: HYPERCHOLESTEROLAEMIA
     Dosage: 40 MILLIGRAM, FOR  MORE THAN 2 YEARS
     Route: 048
  7. NEBIVOLOL 5 [Concomitant]
     Dosage: DAILY DOSE: 1.25 MG MILLGRAM(S) EVERY DAYS (1/4-0-0)
  8. NITRENDIPIN 10 [Concomitant]
     Dosage: DAILY DOSE: 10 MG MILLGRAM(S) EVERY DAYS 2 SEPARATED DOSES (1/2-0-1/2)
  9. ESOMEPRAZOL 20 [Concomitant]
     Dosage: DAILY DOSE: 20 MG MILLGRAM(S) EVERY DAYS  (0-1-0)

REACTIONS (6)
  - Renal failure [Not Recovered/Not Resolved]
  - Myalgia [Not Recovered/Not Resolved]
  - Blood uric acid decreased [Not Recovered/Not Resolved]
  - Blood creatine phosphokinase increased [Not Recovered/Not Resolved]
  - Blood creatinine increased [Not Recovered/Not Resolved]
  - Muscular weakness [Not Recovered/Not Resolved]

NARRATIVE: CASE EVENT DATE: 2019
